FAERS Safety Report 25025037 (Version 1)
Quarter: 2025Q1

REPORT INFORMATION
  Report Type: Spontaneous
  Country: CN (occurrence: CN)
  Receive Date: 20250228
  Receipt Date: 20250228
  Transmission Date: 20250408
  Serious: Yes (Hospitalization)
  Sender: BOEHRINGER INGELHEIM
  Company Number: CN-BoehringerIngelheim-2025-BI-011166

PATIENT
  Age: 6 Month
  Sex: Male
  Weight: 6.9 kg

DRUGS (5)
  1. ATROVENT [Suspect]
     Active Substance: IPRATROPIUM BROMIDE
     Indication: Pneumonia
     Dates: start: 20210914, end: 20210924
  2. PULMICORT TURBUHALER [Suspect]
     Active Substance: BUDESONIDE
     Indication: Pneumonia
     Dosage: FOA: INHALATION SUSPENSION
     Dates: start: 20210914, end: 20210924
  3. BRICANYL [Suspect]
     Active Substance: TERBUTALINE SULFATE
     Indication: Pneumonia
     Dates: start: 20210914, end: 20210924
  4. CEFOTAXIME SODIUM [Suspect]
     Active Substance: CEFOTAXIME SODIUM
     Indication: Pneumonia
     Dates: start: 20210914, end: 20210924
  5. SODIUM CHLORIDE [Concomitant]
     Active Substance: SODIUM CHLORIDE
     Indication: Drug therapy
     Dates: start: 20210914, end: 20210924

REACTIONS (1)
  - Oral candidiasis [Recovering/Resolving]

NARRATIVE: CASE EVENT DATE: 20210917
